FAERS Safety Report 7347367-2 (Version None)
Quarter: 2011Q1

REPORT INFORMATION
  Report Type: 
  Country: None (occurrence: None)
  Receive Date: 20110303
  Receipt Date: 20110222
  Transmission Date: 20110831
  Serious: Yes (Death)
  Sender: FDA-Public Use
  Company Number: UTC-005336

PATIENT
  Age: 49 Year
  Sex: Male
  Weight: 85 kg

DRUGS (6)
  1. TRACLEER [Concomitant]
  2. DIURETICS (DIURETICS) [Concomitant]
  3. REMODULIN [Suspect]
     Dosage: 4.32 UG/KG (0.003 UG/KG,1 IN 1 MIN),INTRAVENOUS
     Route: 042
     Dates: start: 20110127
  4. CALCIUM CHANNEL BLOCKERS (CALCIUM CHANNEL BLOCKERS) [Concomitant]
  5. COUMADIN [Concomitant]
  6. REVATIO [Concomitant]

REACTIONS (2)
  - NAUSEA [None]
  - LEFT VENTRICULAR FAILURE [None]
